FAERS Safety Report 11468040 (Version 1)
Quarter: 2015Q3

REPORT INFORMATION
  Report Type: Spontaneous
  Country: US (occurrence: US)
  Receive Date: 20150908
  Receipt Date: 20150908
  Transmission Date: 20151125
  Serious: No
  Sender: FDA-Public Use
  Company Number: US-PFIZER INC-2015288174

PATIENT
  Sex: Female

DRUGS (1)
  1. ADVIL PM [Suspect]
     Active Substance: DIPHENHYDRAMINE CITRATE\IBUPROFEN
     Indication: INSOMNIA
     Dosage: 25 MG, UNK
     Dates: start: 20150826

REACTIONS (3)
  - Hangover [Unknown]
  - Somnolence [Unknown]
  - Expired product administered [Unknown]

NARRATIVE: CASE EVENT DATE: 20150826
